FAERS Safety Report 16943729 (Version 2)
Quarter: 2019Q4

REPORT INFORMATION
  Report Type: Report from Study
  Country: None (occurrence: BE)
  Receive Date: 20191022
  Receipt Date: 20191106
  Transmission Date: 20200122
  Serious: Yes (Hospitalization)
  Sender: FDA-Public Use
  Company Number: BE-ABBVIE-19K-013-2971092-00

PATIENT
  Sex: Male

DRUGS (3)
  1. DUODOPA [Suspect]
     Active Substance: CARBIDOPA\LEVODOPA
     Indication: PARKINSON^S DISEASE
     Dosage: MD=10ML, CD=3.5ML/HR DURING 16HRS, ED=1ML
     Route: 050
     Dates: start: 20180716, end: 20180717
  2. DUODOPA [Suspect]
     Active Substance: CARBIDOPA\LEVODOPA
     Dosage: MD=14ML, CD=4.6ML/HR DURING 16HRS, ED=2ML
     Route: 050
     Dates: start: 20190627
  3. DUODOPA [Suspect]
     Active Substance: CARBIDOPA\LEVODOPA
     Dosage: DOSES CONTINUOUSLY MONITORED AND ADAPTED
     Route: 050
     Dates: start: 20180717, end: 20190627

REACTIONS (1)
  - Syncope [Unknown]

NARRATIVE: CASE EVENT DATE: 2019
